FAERS Safety Report 6014636-8 (Version None)
Quarter: 2008Q4

REPORT INFORMATION
  Report Type: 
  Country: None (occurrence: None)
  Receive Date: 20081219
  Receipt Date: 20081003
  Transmission Date: 20090506
  Serious: No
  Sender: FDA-Public Use
  Company Number: A0750484A

PATIENT
  Age: 54 Year
  Sex: Male

DRUGS (9)
  1. AVODART [Suspect]
     Indication: BENIGN PROSTATIC HYPERPLASIA
     Dosage: .5MG PER DAY
     Route: 048
     Dates: start: 20070101
  2. PRILOSEC [Concomitant]
  3. VYTORIN [Concomitant]
  4. CITALOPRAM [Concomitant]
  5. DOXAZOSIN MESYLATE [Concomitant]
  6. WELLBUTRIN [Concomitant]
  7. METOPROLOL TARTRATE [Concomitant]
  8. EXFORGE [Concomitant]
  9. VITAMINS [Concomitant]

REACTIONS (3)
  - DRUG ADMINISTRATION ERROR [None]
  - ORAL DISCOMFORT [None]
  - THROAT IRRITATION [None]
